FAERS Safety Report 10014505 (Version 2)
Quarter: 2014Q2

REPORT INFORMATION
  Report Type: Report from Study
  Country: GB (occurrence: GB)
  Receive Date: 20140317
  Receipt Date: 20140519
  Transmission Date: 20141212
  Serious: Yes (Other)
  Sender: FDA-Public Use
  Company Number: GB-INCYTE CORPORATION-2014IN000580

PATIENT
  Age: 72 Year
  Sex: Male
  Weight: 75.5 kg

DRUGS (6)
  1. JAKAVI [Suspect]
     Indication: MYELOFIBROSIS
     Dosage: 10 MG, BID
     Route: 048
     Dates: end: 20140225
  2. INC424 [Suspect]
     Indication: MYELOFIBROSIS
     Dosage: 10 MG, BID
     Route: 048
     Dates: start: 20121114
  3. INC424 [Suspect]
     Dosage: 10 MG, BID
     Route: 048
     Dates: end: 20140225
  4. SIMVASTATIN [Concomitant]
     Indication: HYPERCHOLESTEROLAEMIA
     Dosage: UNK
     Dates: start: 20130716
  5. PERINDOPRIL [Concomitant]
     Indication: HYPERTENSION
     Dosage: UNK
  6. PERINDOPRIL [Concomitant]
     Dosage: UNK

REACTIONS (1)
  - Haematological malignancy [Recovering/Resolving]
